FAERS Safety Report 19149256 (Version 1)
Quarter: 2021Q2

REPORT INFORMATION
  Report Type: Spontaneous
  Country: CN (occurrence: CN)
  Receive Date: 20210417
  Receipt Date: 20210417
  Transmission Date: 20210717
  Serious: Yes (Other)
  Sender: FDA-Public Use
  Company Number: CN-AUROBINDO-AUR-APL-2019-103942

PATIENT
  Age: 12 Month
  Sex: Female

DRUGS (2)
  1. MELPHALAN INJECTION [Suspect]
     Active Substance: MELPHALAN
     Dosage: 5 MILLIGRAM
     Route: 013
  2. MELPHALAN INJECTION [Suspect]
     Active Substance: MELPHALAN
     Indication: RETINOBLASTOMA
     Dosage: 8 MICROGRAM IN 0.05 ML
     Route: 031

REACTIONS (4)
  - Product use issue [Unknown]
  - Off label use [Unknown]
  - Retinal depigmentation [Unknown]
  - Chorioretinal atrophy [Not Recovered/Not Resolved]
